FAERS Safety Report 13196663 (Version 2)
Quarter: 2017Q1

REPORT INFORMATION
  Report Type: Spontaneous
  Country: ES (occurrence: ES)
  Receive Date: 20170208
  Receipt Date: 20170222
  Transmission Date: 20170428
  Serious: Yes (Other)
  Sender: FDA-Public Use
  Company Number: ES-009507513-1701ESP012410

PATIENT
  Age: 37 Year
  Sex: Female

DRUGS (2)
  1. INTRON A [Suspect]
     Active Substance: INTERFERON ALFA-2B
     Indication: MALIGNANT MELANOMA
     Dosage: LOW DOSES (3 MILLION IU, TIW)
     Dates: start: 2005, end: 2006
  2. INTRON A [Suspect]
     Active Substance: INTERFERON ALFA-2B
     Dosage: HIGH DOSES
     Dates: start: 200808, end: 200910

REACTIONS (19)
  - Metastases to bone [Recovered/Resolved]
  - Skin mass [Recovered/Resolved]
  - Pruritus [Recovered/Resolved]
  - Rash [Recovered/Resolved]
  - Metastatic malignant melanoma [Recovered/Resolved]
  - Metastases to central nervous system [Recovered/Resolved]
  - Hepatotoxicity [Recovered/Resolved]
  - Haematoma [Recovered/Resolved]
  - Metastasis [Recovered/Resolved]
  - Leukopenia [Recovered/Resolved]
  - Metastases to bone [Recovered/Resolved]
  - Disease recurrence [Recovered/Resolved]
  - Pain [Recovered/Resolved]
  - Skin mass [Recovered/Resolved]
  - Metastases to soft tissue [Recovered/Resolved]
  - Skin lesion [Recovered/Resolved]
  - Pruritus [Recovered/Resolved]
  - Fallopian tube neoplasm [Recovered/Resolved]
  - Conjunctival irritation [Recovered/Resolved]

NARRATIVE: CASE EVENT DATE: 2008
